FAERS Safety Report 13238777 (Version 1)
Quarter: 2017Q1

REPORT INFORMATION
  Report Type: Spontaneous
  Country: IT (occurrence: IT)
  Receive Date: 20170216
  Receipt Date: 20170216
  Transmission Date: 20170428
  Serious: Yes (Other)
  Sender: FDA-Public Use
  Company Number: IT-APOPHARMA-2015AP005190

PATIENT
  Age: 36 Year
  Sex: Male

DRUGS (1)
  1. FERRIPROX [Suspect]
     Active Substance: DEFERIPRONE
     Indication: CHELATION THERAPY
     Dosage: 4 G, QD
     Route: 048
     Dates: start: 2008

REACTIONS (5)
  - Muscle spasms [Recovered/Resolved]
  - Fatigue [Unknown]
  - Thrombosis [Unknown]
  - Tendonitis [Recovering/Resolving]
  - Somnolence [Unknown]

NARRATIVE: CASE EVENT DATE: 2008
